FAERS Safety Report 7593651-7 (Version None)
Quarter: 2011Q3

REPORT INFORMATION
  Report Type: 
  Country: None (occurrence: None)
  Receive Date: 20110706
  Receipt Date: 20110701
  Transmission Date: 20111222
  Serious: Yes (Hospitalization, Other)
  Sender: FDA-Public Use
  Company Number: PHHO2011AU01604

PATIENT
  Sex: Male

DRUGS (11)
  1. AZACITIDINE [Suspect]
     Indication: ACUTE MYELOID LEUKAEMIA
     Dosage: 138 MG, DAILY
     Dates: start: 20110110
  2. OXYCODONE HCL [Concomitant]
     Indication: ANALGESIC THERAPY
  3. ASCORBIC ACID [Concomitant]
  4. EVEROLIMUS [Suspect]
     Indication: ACUTE MYELOID LEUKAEMIA
     Dosage: 2.5 MG, DAILY
     Dates: start: 20110114
  5. ACETAMINOPHEN [Suspect]
     Indication: ANALGESIC THERAPY
     Dosage: 1 G, QID. PRN
     Route: 048
  6. MULTI-VITAMINS [Concomitant]
  7. OLIVE LEAVES EXTRACT [Concomitant]
     Indication: SUPPLEMENTATION THERAPY
  8. VALTREX [Concomitant]
     Indication: PROPHYLAXIS
  9. NYSTATIN [Concomitant]
     Indication: PROPHYLAXIS
  10. CIPROFLOXACIN [Concomitant]
     Indication: PROPHYLAXIS
     Dosage: UNK
  11. POSACONAZOLE [Concomitant]
     Indication: PROPHYLAXIS

REACTIONS (8)
  - FEBRILE NEUTROPENIA [None]
  - INFECTION [None]
  - MUSCULOSKELETAL PAIN [None]
  - DERMATITIS [None]
  - LUNG CONSOLIDATION [None]
  - RASH ERYTHEMATOUS [None]
  - PNEUMOTHORAX [None]
  - LICHENOID KERATOSIS [None]
